FAERS Safety Report 5664738-0 (Version None)
Quarter: 2008Q1

REPORT INFORMATION
  Report Type: 
  Country: None (occurrence: None)
  Receive Date: 20080314
  Receipt Date: 20080303
  Transmission Date: 20080703
  Serious: Yes (Other)
  Sender: FDA-Public Use
  Company Number: US-TEVA-168305USA

PATIENT
  Age: 57 Year
  Sex: Male

DRUGS (2)
  1. ENALAPRIL MALEATE 2.5 MG, 5 MG, 10 MG + 20 MG TABLETS [Suspect]
  2. TENORETIC 100 [Suspect]

REACTIONS (6)
  - HYPERTENSION [None]
  - INJURY [None]
  - LOSS OF CONSCIOUSNESS [None]
  - MEDICATION ERROR [None]
  - RIB FRACTURE [None]
  - SKIN LACERATION [None]
